FAERS Safety Report 19067015 (Version 1)
Quarter: 2021Q1

REPORT INFORMATION
  Report Type: Spontaneous
  Country: ES (occurrence: ES)
  Receive Date: 20210329
  Receipt Date: 20210329
  Transmission Date: 20210420
  Serious: No
  Sender: FDA-Public Use
  Company Number: ES-TOLMAR, INC.-21ES026134

PATIENT
  Sex: Male

DRUGS (1)
  1. ELIGARD [Suspect]
     Active Substance: LEUPROLIDE ACETATE
     Indication: PRODUCT USED FOR UNKNOWN INDICATION
     Dosage: 45 MG
     Route: 065
     Dates: start: 20210209

REACTIONS (3)
  - Syringe issue [Unknown]
  - Intercepted product preparation error [Unknown]
  - Product physical consistency issue [Unknown]

NARRATIVE: CASE EVENT DATE: 20210209
